FAERS Safety Report 9817993 (Version 1)
Quarter: 2013Q4

REPORT INFORMATION
  Report Type: Spontaneous
  Country: US (occurrence: None)
  Receive Date: 20131223
  Receipt Date: 20131223
  Transmission Date: 20140711
  Serious: No
  Sender: FDA-Public Use
  Company Number: 218886

PATIENT
  Age: 77 Year
  Sex: Male

DRUGS (4)
  1. PICATO GEL [Suspect]
     Indication: ACTINIC KERATOSIS
     Route: 061
     Dates: start: 20120909, end: 20120910
  2. HYZAAR (HYZAAR) [Concomitant]
  3. ASPIRIN (ACETYLSALICYLIC ACID) [Concomitant]
  4. FISH OIL (FISH OIL) [Concomitant]

REACTIONS (5)
  - Application site pain [None]
  - Application site exfoliation [None]
  - Off label use [None]
  - Application site erythema [None]
  - Drug administered at inappropriate site [None]
